FAERS Safety Report 12948968 (Version 1)
Quarter: 2016Q4

REPORT INFORMATION
  Report Type: Spontaneous
  Country: US (occurrence: US)
  Receive Date: 20161116
  Receipt Date: 20161116
  Transmission Date: 20170207
  Serious: Yes (Hospitalization, Other)
  Sender: FDA-Public Use
  Company Number: US-009507513-1611USA007208

PATIENT
  Age: 29 Year
  Sex: Female

DRUGS (1)
  1. NUVARING [Suspect]
     Active Substance: ETHINYL ESTRADIOL\ETONOGESTREL
     Indication: CONTRACEPTION
     Dosage: 3 WEEKS IN PLACE, 1 WEEK RING FREE
     Route: 067
     Dates: start: 2014

REACTIONS (3)
  - Pulmonary embolism [Unknown]
  - Swelling [Unknown]
  - Pain [Unknown]

NARRATIVE: CASE EVENT DATE: 2014
